FAERS Safety Report 5763095-9 (Version None)
Quarter: 2008Q2

REPORT INFORMATION
  Report Type: 
  Country: None (occurrence: None)
  Receive Date: 20080609
  Receipt Date: 20080528
  Transmission Date: 20081010
  Serious: Yes (Hospitalization)
  Sender: FDA-Public Use
  Company Number: BE-PFIZER INC-2008039587

PATIENT
  Sex: Female

DRUGS (5)
  1. SU-011,248 [Suspect]
     Indication: BREAST CANCER METASTATIC
     Dosage: DAILY DOSE:37.5MG
     Route: 048
     Dates: start: 20080407, end: 20080428
  2. SU-011,248 [Suspect]
     Route: 048
  3. ALDACTAZINE [Concomitant]
     Route: 048
  4. LIPITOR [Concomitant]
     Route: 048
  5. OMEPRAZOLE [Concomitant]
     Route: 048

REACTIONS (6)
  - BLOOD BILIRUBIN INCREASED [None]
  - DIARRHOEA [None]
  - FATIGUE [None]
  - HEPATIC ENZYME INCREASED [None]
  - HYPOKALAEMIA [None]
  - MUSCULAR WEAKNESS [None]
